FAERS Safety Report 18073711 (Version 1)
Quarter: 2020Q3

REPORT INFORMATION
  Report Type: Spontaneous
  Country: US (occurrence: US)
  Receive Date: 20200727
  Receipt Date: 20200727
  Transmission Date: 20201103
  Serious: Yes (Death, Hospitalization, Disabling, Other)
  Sender: FDA-Public Use
  Company Number: US-PFIZER INC-2020283932

PATIENT
  Sex: Female

DRUGS (1)
  1. CHANTIX [Suspect]
     Active Substance: VARENICLINE TARTRATE
     Indication: SMOKING CESSATION THERAPY
     Dosage: UNK

REACTIONS (5)
  - Uterine cancer [Unknown]
  - Myocardial infarction [Fatal]
  - Hypotension [Fatal]
  - Sepsis [Fatal]
  - Abnormal dreams [Unknown]

NARRATIVE: CASE EVENT DATE: 201901
